FAERS Safety Report 19470314 (Version 1)
Quarter: 2021Q2

REPORT INFORMATION
  Report Type: Spontaneous
  Country: GB (occurrence: GB)
  Receive Date: 20210628
  Receipt Date: 20210628
  Transmission Date: 20210717
  Serious: Yes (Other)
  Sender: FDA-Public Use
  Company Number: GB-TEVA-2021-GB-1926077

PATIENT
  Age: 75 Year
  Sex: Female

DRUGS (2)
  1. DEXAMETHASONE. [Suspect]
     Active Substance: DEXAMETHASONE
     Indication: PERITONSILLAR ABSCESS
     Route: 048
     Dates: start: 20210614, end: 20210616
  2. CLARITHROMYCIN. [Suspect]
     Active Substance: CLARITHROMYCIN
     Indication: PERITONSILLAR ABSCESS
     Dosage: 1000 MILLIGRAM DAILY;
     Route: 048
     Dates: start: 20210614, end: 20210618

REACTIONS (1)
  - Hallucination, visual [Unknown]

NARRATIVE: CASE EVENT DATE: 20210616
